FAERS Safety Report 6971135 (Version 3)
Quarter: 2016Q1

REPORT INFORMATION
  Report Type: Spontaneous
  Country: FR (occurrence: FR)
  Receive Date: 20081219
  Receipt Date: 20160213
  Transmission Date: 20160526
  Serious: Yes (Hospitalization, Other)
  Sender: FDA-Public Use
  Company Number: FR-BRISTOL-MYERS SQUIBB COMPANY-14444228

PATIENT
  Age: 3 Year
  Sex: Female

DRUGS (11)
  1. AMOXICILLIN TRIHYDRATE [Suspect]
     Active Substance: AMOXICILLIN
     Indication: APLASIA
     Dosage: UNK
     Route: 065
     Dates: start: 20080612, end: 20080617
  2. NALBUPHINE HCL [Suspect]
     Active Substance: NALBUPHINE HYDROCHLORIDE
     Indication: VIRAL INFECTION
     Route: 065
  3. VANCOMYCIN [Suspect]
     Active Substance: VANCOMYCIN
     Indication: VIRAL INFECTION
     Route: 065
  4. FORTUM [Suspect]
     Active Substance: CEFTAZIDIME
     Indication: VIRAL INFECTION
     Route: 065
  5. ROCEPHINE [Suspect]
     Active Substance: CEFTRIAXONE SODIUM
     Indication: VIRAL INFECTION
     Route: 065
  6. OFLOCET [Suspect]
     Active Substance: OFLOXACIN
     Indication: VIRAL INFECTION
     Route: 065
  7. EFFERALGAN [Suspect]
     Active Substance: ACETAMINOPHEN
     Indication: VIRAL INFECTION
     Dosage: UNK
     Route: 065
     Dates: start: 20080612, end: 20080617
  8. AMIKACIN SULFATE. [Suspect]
     Active Substance: AMIKACIN SULFATE
     Indication: VIRAL INFECTION
     Route: 065
  9. HEXOMEDINE [Suspect]
     Active Substance: HEXAMIDINE DIISETHIONATE
     Indication: VIRAL INFECTION
     Route: 065
  10. FUCIDINE [Suspect]
     Active Substance: FUSIDIC ACID
     Indication: VIRAL INFECTION
     Route: 065
  11. ATARAX [Suspect]
     Active Substance: HYDROXYZINE\HYDROXYZINE HYDROCHLORIDE
     Indication: VIRAL INFECTION
     Route: 065

REACTIONS (2)
  - Product use issue [Unknown]
  - Toxic epidermal necrolysis [Recovered/Resolved with Sequelae]

NARRATIVE: CASE EVENT DATE: 20080617
